FAERS Safety Report 20362422 (Version 1)
Quarter: 2022Q1

REPORT INFORMATION
  Report Type: Other
  Country: IT (occurrence: None)
  Receive Date: 20220121
  Receipt Date: 20220121
  Transmission Date: 20220423
  Serious: Yes (Death)
  Sender: FDA-Public Use
  Company Number: IT-ROCHE-3000233

PATIENT

DRUGS (8)
  1. TOCILIZUMAB [Suspect]
     Active Substance: TOCILIZUMAB
     Indication: Rheumatoid arthritis
     Route: 065
  2. TOCILIZUMAB [Suspect]
     Active Substance: TOCILIZUMAB
     Indication: Cytokine release syndrome
  3. TOCILIZUMAB [Suspect]
     Active Substance: TOCILIZUMAB
     Indication: COVID-19
  4. TOCILIZUMAB [Suspect]
     Active Substance: TOCILIZUMAB
     Indication: Castleman^s disease
  5. TOCILIZUMAB [Suspect]
     Active Substance: TOCILIZUMAB
     Indication: Still^s disease
  6. TOCILIZUMAB [Suspect]
     Active Substance: TOCILIZUMAB
     Indication: Juvenile idiopathic arthritis
  7. TOCILIZUMAB [Suspect]
     Active Substance: TOCILIZUMAB
     Indication: Systemic lupus erythematosus
  8. TOCILIZUMAB [Suspect]
     Active Substance: TOCILIZUMAB
     Indication: Giant cell arteritis

REACTIONS (19)
  - Anaphylactic reaction [Fatal]
  - Anaphylactic shock [Fatal]
  - Blindness [Fatal]
  - Deafness neurosensory [Fatal]
  - Drug-induced liver injury [Fatal]
  - Intestinal perforation [Fatal]
  - Pancreatitis [Fatal]
  - Pancreatitis acute [Fatal]
  - Pancytopenia [Fatal]
  - Pulmonary fibrosis [Fatal]
  - Pulmonary hypertension [Fatal]
  - Renal failure [Fatal]
  - Sudden hearing loss [Fatal]
  - Acute hepatic failure [Fatal]
  - Autoimmune hepatitis [Fatal]
  - Hepatic failure [Fatal]
  - Hepatic necrosis [Fatal]
  - Hepatitis fulminant [Fatal]
  - Off label use [Unknown]
